FAERS Safety Report 7479117-3 (Version None)
Quarter: 2011Q2

REPORT INFORMATION
  Report Type: 
  Country: None (occurrence: None)
  Receive Date: 20110513
  Receipt Date: 20110509
  Transmission Date: 20111010
  Serious: Yes (Other)
  Sender: FDA-Public Use
  Company Number: GB-BRISTOL-MYERS SQUIBB COMPANY-15727001

PATIENT
  Age: 33 Year
  Sex: Female

DRUGS (11)
  1. VINCRISTINE [Suspect]
     Indication: BURKITT'S LYMPHOMA
     Route: 065
  2. EMTRICITABINE [Concomitant]
     Indication: ANTIRETROVIRAL THERAPY
     Route: 065
  3. IFOSFAMIDE [Suspect]
     Indication: BURKITT'S LYMPHOMA
     Route: 065
  4. TENOFOVIR DISOPROXIL FUMARATE [Concomitant]
     Indication: ANTIRETROVIRAL THERAPY
     Route: 065
  5. CYCLOPHOSPHAMIDE [Suspect]
     Indication: BURKITT'S LYMPHOMA
     Route: 065
  6. METHOTREXATE [Suspect]
     Indication: BURKITT'S LYMPHOMA
     Route: 065
  7. ETOPOSIDE [Suspect]
     Indication: BURKITT'S LYMPHOMA
     Route: 065
  8. CYTARABINE [Suspect]
     Indication: BURKITT'S LYMPHOMA
     Route: 065
  9. INTELENCE [Concomitant]
     Indication: ANTIRETROVIRAL THERAPY
     Route: 065
  10. DOXORUBICIN HCL [Suspect]
     Indication: BURKITT'S LYMPHOMA
     Dosage: LIPOSOME INJECTION
     Route: 042
  11. ISENTRESS [Concomitant]
     Indication: ANTIRETROVIRAL THERAPY
     Route: 065

REACTIONS (3)
  - PNEUMOCYSTIS JIROVECI PNEUMONIA [None]
  - OESOPHAGEAL CANDIDIASIS [None]
  - MUCOSAL INFLAMMATION [None]
